FAERS Safety Report 11532593 (Version 1)
Quarter: 2015Q3

REPORT INFORMATION
  Report Type: Spontaneous
  Country: US (occurrence: US)
  Receive Date: 20150903
  Receipt Date: 20150903
  Transmission Date: 20151125
  Serious: No
  Sender: FDA-Public Use
  Company Number: US-ELI_LILLY_AND_COMPANY-US201202005709

PATIENT
  Sex: Female

DRUGS (5)
  1. HUMALOG [Suspect]
     Active Substance: INSULIN LISPRO
     Indication: TYPE 2 DIABETES MELLITUS
     Dosage: 17 U, EACH MORNING
     Dates: start: 201201
  2. LANTUS [Concomitant]
     Active Substance: INSULIN GLARGINE
     Dosage: UNK, EACH MORNING
  3. NOVOLOG [Concomitant]
     Active Substance: INSULIN ASPART
     Dosage: UNK
  4. HUMALOG [Suspect]
     Active Substance: INSULIN LISPRO
     Dosage: 7 U, EACH EVENING
     Dates: start: 201201
  5. HUMALOG [Suspect]
     Active Substance: INSULIN LISPRO
     Dosage: 12 U, OTHER
     Dates: start: 201201

REACTIONS (3)
  - Underdose [Unknown]
  - Vision blurred [Unknown]
  - Visual acuity reduced [Unknown]
